FAERS Safety Report 7315036-0 (Version None)
Quarter: 2011Q1

REPORT INFORMATION
  Report Type: 
  Country: None (occurrence: None)
  Receive Date: 20110225
  Receipt Date: 20100318
  Transmission Date: 20110831
  Serious: No
  Sender: FDA-Public Use
  Company Number: US-MYLANLABS-2010S1004569

PATIENT
  Sex: Male

DRUGS (4)
  1. AMNESTEEM [Suspect]
     Indication: ACNE FULMINANS
     Route: 048
     Dates: start: 20091201, end: 20100315
  2. COLCHICINE [Concomitant]
     Indication: ARTHRITIS
     Route: 048
  3. PREDNISONE [Concomitant]
     Indication: ARTHRITIS
     Route: 048
  4. CLARAVIS [Suspect]
     Indication: ACNE FULMINANS
     Route: 048
     Dates: start: 20091101, end: 20091201

REACTIONS (1)
  - ARTHRALGIA [None]
